FAERS Safety Report 10643179 (Version 1)
Quarter: 2014Q4

REPORT INFORMATION
  Report Type: Spontaneous
  Country: US (occurrence: None)
  Receive Date: 20141209
  Receipt Date: 20141209
  Transmission Date: 20150529
  Serious: Yes (Other)
  Sender: FDA-Public Use
  Company Number: None

PATIENT
  Age: 43 Year
  Sex: Male
  Weight: 147.7 kg

DRUGS (2)
  1. FENTANYL. [Suspect]
     Active Substance: FENTANYL
     Indication: PAIN
     Route: 042
     Dates: start: 20141125, end: 20141125
  2. HYDROMORPHONE [Suspect]
     Active Substance: HYDROMORPHONE
     Indication: PAIN
     Route: 042
     Dates: start: 20141125, end: 20141126

REACTIONS (11)
  - Hypoxia [None]
  - Bradycardia [None]
  - Respiratory depression [None]
  - Hypotension [None]
  - Hypopnoea [None]
  - Somnolence [None]
  - Alcohol withdrawal syndrome [None]
  - Embolism [None]
  - Seizure [None]
  - Hypercapnia [None]
  - Withdrawal syndrome [None]

NARRATIVE: CASE EVENT DATE: 20141126
